FAERS Safety Report 9470348 (Version 1)
Quarter: 2013Q3

REPORT INFORMATION
  Report Type: Spontaneous
  Country: US (occurrence: US)
  Receive Date: 20130822
  Receipt Date: 20130822
  Transmission Date: 20140515
  Serious: Yes (Hospitalization, Other)
  Sender: FDA-Public Use
  Company Number: US-SANOFI-AVENTIS-2012SA093598

PATIENT
  Age: 65 Year
  Sex: Male

DRUGS (3)
  1. MULTAQ [Suspect]
     Indication: ATRIAL FIBRILLATION
     Route: 048
     Dates: start: 2010
  2. MULTAQ [Suspect]
     Indication: ATRIAL FIBRILLATION
     Dosage: 1/2 400 MG
     Route: 048
     Dates: start: 201212
  3. CARDIZEM [Concomitant]

REACTIONS (3)
  - Atrial fibrillation [Recovered/Resolved]
  - Atrial fibrillation [Recovered/Resolved]
  - Therapeutic response decreased [Recovered/Resolved]
